FAERS Safety Report 5550900-4 (Version None)
Quarter: 2007Q4

REPORT INFORMATION
  Report Type: 
  Country: None (occurrence: None)
  Receive Date: 20071212
  Receipt Date: 20071211
  Transmission Date: 20080405
  Serious: Yes (Other)
  Sender: FDA-Public Use
  Company Number: A0698228A

PATIENT
  Age: 57 Year
  Sex: Female

DRUGS (7)
  1. CITRUCEL [Suspect]
     Indication: IRRITABLE BOWEL SYNDROME
     Route: 048
     Dates: start: 20030101, end: 20071209
  2. DILANTIN [Suspect]
     Route: 048
     Dates: start: 20070701
  3. KEPPRA [Suspect]
     Dates: start: 20060701
  4. LAMICTAL [Suspect]
     Dates: start: 20060301
  5. SERTRALINE [Concomitant]
  6. MULTI-VITAMIN [Concomitant]
  7. CREAM [Concomitant]

REACTIONS (12)
  - ASTHENIA [None]
  - ATAXIA [None]
  - BREAST CYST [None]
  - COMPLEX PARTIAL SEIZURES [None]
  - CONVULSION [None]
  - DRUG INTERACTION [None]
  - FATIGUE [None]
  - GRAND MAL CONVULSION [None]
  - INSOMNIA [None]
  - IRRITABILITY [None]
  - SLEEP DISORDER [None]
  - VISION BLURRED [None]
